FAERS Safety Report 8852885 (Version 4)
Quarter: 2013Q3

REPORT INFORMATION
  Report Type: Spontaneous
  Country: JP (occurrence: JP)
  Receive Date: 20121022
  Receipt Date: 20130808
  Transmission Date: 20140515
  Serious: Yes (Hospitalization, Other)
  Sender: FDA-Public Use
  Company Number: JP-BAXTER-2012BAX020752

PATIENT
  Age: 83 Year
  Sex: Female

DRUGS (12)
  1. HOLOXAN 1000 MG, POUDRE POUR SOLUTION INJECTABLE [Suspect]
     Indication: UTERINE CANCER
     Route: 041
     Dates: start: 20120918, end: 20120922
  2. MEYLON [Concomitant]
     Indication: PROPHYLAXIS
     Route: 041
     Dates: start: 20120918, end: 20120923
  3. NEUTROGIN [Concomitant]
     Indication: PROPHYLAXIS
     Route: 058
     Dates: start: 20120923, end: 20120923
  4. DECADRON [Concomitant]
     Indication: PROPHYLAXIS OF NAUSEA AND VOMITING
     Route: 065
     Dates: start: 20120924, end: 20120926
  5. EMEND [Concomitant]
     Indication: PROPHYLAXIS
     Route: 048
     Dates: start: 20120918, end: 20120918
  6. EMEND [Concomitant]
     Route: 048
     Dates: start: 20120919, end: 20120922
  7. BLOPRESS [Concomitant]
     Indication: HYPERTENSION
     Route: 048
  8. ARTIST [Concomitant]
     Indication: HYPERTENSION
     Route: 048
  9. BASEN OD [Concomitant]
     Indication: TYPE 2 DIABETES MELLITUS
     Route: 048
  10. NESINA [Concomitant]
     Indication: TYPE 2 DIABETES MELLITUS
     Route: 048
  11. FERROMIA [Concomitant]
     Indication: ANAEMIA
     Route: 048
  12. RIZE [Concomitant]
     Indication: ANXIETY DISORDER
     Route: 048

REACTIONS (5)
  - Hyponatraemia [Recovered/Resolved]
  - Inappropriate antidiuretic hormone secretion [None]
  - Vomiting [None]
  - Urine output decreased [None]
  - Nausea [None]
